FAERS Safety Report 7928634-8 (Version None)
Quarter: 2011Q4

REPORT INFORMATION
  Report Type: 
  Country: None (occurrence: None)
  Receive Date: 20111118
  Receipt Date: 20111111
  Transmission Date: 20120403
  Serious: Yes (Hospitalization)
  Sender: FDA-Public Use
  Company Number: CHPA2011DE015937

PATIENT
  Age: 68 Year
  Sex: Male
  Weight: 62 kg

DRUGS (3)
  1. TERBINAFINE HCL [Suspect]
     Indication: ONYCHOMYCOSIS
     Dosage: 250 MG, QD
     Route: 048
     Dates: start: 20110720, end: 20110817
  2. TERBINAFINE HCL [Suspect]
     Dosage: 250 MG, QD
     Route: 048
     Dates: start: 20110820, end: 20110821
  3. IBUPROFEN [Suspect]
     Indication: PYREXIA
     Dosage: 400 MG, TID
     Route: 048
     Dates: start: 20110815, end: 20110820

REACTIONS (3)
  - CHOLESTASIS [None]
  - BODY TEMPERATURE INCREASED [None]
  - HEPATITIS ACUTE [None]
